FAERS Safety Report 10606401 (Version 5)
Quarter: 2015Q2

REPORT INFORMATION
  Report Type: Spontaneous
  Country: JP (occurrence: JP)
  Receive Date: 20141125
  Receipt Date: 20150609
  Transmission Date: 20150821
  Serious: Yes (Other)
  Sender: FDA-Public Use
  Company Number: JP-JNJFOC-20141113635

PATIENT
  Age: 95 Year
  Sex: Female
  Weight: 35 kg

DRUGS (19)
  1. TRAMCET [Suspect]
     Active Substance: ACETAMINOPHEN\TRAMADOL
     Indication: PAIN
     Route: 048
     Dates: start: 20131018, end: 20141018
  2. PRIMPERAN [Suspect]
     Active Substance: METOCLOPRAMIDE HYDROCHLORIDE
     Indication: PROPHYLAXIS
     Route: 048
  3. TRAMCET [Suspect]
     Active Substance: ACETAMINOPHEN\TRAMADOL
     Indication: PAIN
     Dosage: 1 TABLET AT A TIME AS NEEDED (UP TO 4 TIMES DAILY) FOR 30 DAYS.1 DOSE, 1 PER DAY
     Route: 048
     Dates: start: 20130702, end: 20130702
  4. MOHRUS TAPEL [Concomitant]
     Indication: PAIN
     Route: 062
     Dates: start: 20141014, end: 20141112
  5. HALCION [Suspect]
     Active Substance: TRIAZOLAM
     Indication: PRODUCT USED FOR UNKNOWN INDICATION
     Route: 048
     Dates: end: 20141211
  6. EDIROL [Concomitant]
     Active Substance: ELDECALCITOL
     Indication: OSTEOPOROSIS
     Route: 048
     Dates: start: 20141014, end: 20141112
  7. MERISLON [Concomitant]
     Active Substance: BETAHISTINE MESILATE
     Indication: DIZZINESS
     Route: 048
     Dates: start: 20141010, end: 20141113
  8. FERROMIA [Concomitant]
     Active Substance: FERROUS CITRATE
     Indication: ANAEMIA
     Route: 048
     Dates: start: 20141010, end: 20141113
  9. ASPARA-CA [Concomitant]
     Active Substance: CALCIUM ASPARTATE
     Indication: OSTEOPOROSIS
     Route: 048
     Dates: start: 20141014, end: 20141112
  10. OPALMON [Concomitant]
     Active Substance: LIMAPROST
     Indication: LUMBAR SPINAL STENOSIS
     Route: 048
     Dates: start: 20141014, end: 20141112
  11. ADALAT [Concomitant]
     Active Substance: NIFEDIPINE
     Indication: HYPERTENSION
     Route: 048
     Dates: start: 20141010, end: 20141113
  12. SIMVASTATIN. [Concomitant]
     Active Substance: SIMVASTATIN
     Indication: DYSLIPIDAEMIA
     Route: 048
     Dates: start: 20141010, end: 20141113
  13. EPPIKAJUTSUTO [Concomitant]
     Route: 048
     Dates: start: 20141014, end: 20141112
  14. TRAMCET [Suspect]
     Active Substance: ACETAMINOPHEN\TRAMADOL
     Indication: PAIN
     Route: 048
     Dates: start: 20130914, end: 20130924
  15. VIVIANT [Concomitant]
     Active Substance: BAZEDOXIFENE
     Indication: OSTEOPOROSIS
     Route: 048
     Dates: start: 20141014, end: 20141112
  16. BENAZEP [Concomitant]
     Indication: HYPERTENSION
     Route: 048
     Dates: start: 20141010, end: 20141113
  17. METOCLOPRAMIDE. [Suspect]
     Active Substance: METOCLOPRAMIDE
     Indication: PROPHYLAXIS
     Route: 048
     Dates: start: 20130914, end: 20141018
  18. EDIROL [Concomitant]
     Active Substance: ELDECALCITOL
     Indication: OSTEOPOROSIS
     Route: 048
     Dates: start: 20141014, end: 20141112
  19. MOHRUS TAPE [Concomitant]
     Active Substance: KETOPROFEN
     Route: 062
     Dates: start: 20141014, end: 20141112

REACTIONS (4)
  - Loss of consciousness [Recovered/Resolved]
  - Gaze palsy [Recovered/Resolved]
  - Seizure [Recovered/Resolved]
  - Inappropriate schedule of drug administration [Unknown]

NARRATIVE: CASE EVENT DATE: 2013
